FAERS Safety Report 14743833 (Version 2)
Quarter: 2018Q2

REPORT INFORMATION
  Report Type: Spontaneous
  Country: DE (occurrence: DE)
  Receive Date: 20180410
  Receipt Date: 20180615
  Transmission Date: 20180711
  Serious: Yes (Other)
  Sender: FDA-Public Use
  Company Number: DE-BIOGEN-2018BI00551506

PATIENT
  Age: 0 Day
  Sex: Male

DRUGS (1)
  1. ZINBRYTA [Suspect]
     Active Substance: DACLIZUMAB
     Indication: MATERNAL EXPOSURE TIMING UNSPECIFIED
     Route: 064
     Dates: start: 20161018, end: 20170614

REACTIONS (4)
  - Foetal exposure during pregnancy [Unknown]
  - Hypoglycaemia [Unknown]
  - Sepsis neonatal [Unknown]
  - Resuscitation [Unknown]

NARRATIVE: CASE EVENT DATE: 20180220
